FAERS Safety Report 14819302 (Version 2)
Quarter: 2018Q2

REPORT INFORMATION
  Report Type: Spontaneous
  Country: ZA (occurrence: ZA)
  Receive Date: 20180427
  Receipt Date: 20180601
  Transmission Date: 20180711
  Serious: Yes (Other)
  Sender: FDA-Public Use
  Company Number: ZA-BAYER-2018-057886

PATIENT
  Sex: Female

DRUGS (1)
  1. MIRENA [Suspect]
     Active Substance: LEVONORGESTREL
     Indication: CONTRACEPTION

REACTIONS (5)
  - Pyelonephritis [None]
  - Pneumonia [None]
  - Pregnancy with contraceptive device [Not Recovered/Not Resolved]
  - Gestational diabetes [None]
  - Drug ineffective [None]

NARRATIVE: CASE EVENT DATE: 201710
